FAERS Safety Report 13322690 (Version 1)
Quarter: 2017Q1

REPORT INFORMATION
  Report Type: Spontaneous
  Country: US (occurrence: US)
  Receive Date: 20170309
  Receipt Date: 20170309
  Transmission Date: 20170428
  Serious: No
  Sender: FDA-Public Use
  Company Number: US-BIOGEN-2017BI00366489

PATIENT
  Sex: Female

DRUGS (1)
  1. AVONEX [Suspect]
     Active Substance: INTERFERON BETA-1A
     Indication: MULTIPLE SCLEROSIS
     Route: 030
     Dates: start: 20010314, end: 20130314

REACTIONS (5)
  - Osteoporosis [Unknown]
  - Depression [Unknown]
  - Malaise [Unknown]
  - Blood cholesterol increased [Unknown]
  - Thyroid disorder [Unknown]
